FAERS Safety Report 4293311-4 (Version None)
Quarter: 2004Q1

REPORT INFORMATION
  Report Type: 
  Country: None (occurrence: None)
  Receive Date: 20040126
  Receipt Date: 20031103
  Transmission Date: 20041129
  Serious: No
  Sender: FDA-Public Use
  Company Number: USA031151549

PATIENT
  Age: 74 Year
  Sex: Female

DRUGS (10)
  1. FORTEO [Suspect]
     Indication: OSTEOPOROSIS
     Dates: start: 20030201
  2. METHADONE HCL [Concomitant]
  3. CELEBREX [Concomitant]
  4. AMITRIPTYLINE HCL [Concomitant]
  5. LEXAPRO [Concomitant]
  6. VITAMINS NOS [Concomitant]
  7. PRILOSEC [Concomitant]
  8. PREMARIN [Concomitant]
  9. PROVERA [Concomitant]
  10. .. [Suspect]

REACTIONS (3)
  - DEPRESSION [None]
  - HOT FLUSH [None]
  - HYPERHIDROSIS [None]
